FAERS Safety Report 6109164-5 (Version None)
Quarter: 2009Q1

REPORT INFORMATION
  Report Type: 
  Country: None (occurrence: None)
  Receive Date: 20090306
  Receipt Date: 20090223
  Transmission Date: 20090719
  Serious: Yes (Hospitalization)
  Sender: FDA-Public Use
  Company Number: 201876

PATIENT
  Age: 52 Year
  Sex: Male

DRUGS (4)
  1. NIPENT [Suspect]
     Indication: HAIRY CELL LEUKAEMIA
     Dosage: 8 MG, 1 EVERY 15 DAYS, INTRAVENOUS
     Route: 042
     Dates: start: 20081205, end: 20081205
  2. NIPENT [Suspect]
     Indication: HAIRY CELL LEUKAEMIA
     Dosage: 8 MG, 1 EVERY 15 DAYS, INTRAVENOUS
     Route: 042
     Dates: start: 20081205, end: 20081205
  3. BACTRIM [Suspect]
     Indication: ANTIFUNGAL PROPHYLAXIS
     Dosage: 80 MG, DAILY, ORAL
     Route: 048
     Dates: start: 20081204, end: 20081217
  4. BACTRIM [Suspect]
     Indication: ANTIFUNGAL PROPHYLAXIS
     Dosage: 80 MG, DAILY, ORAL
     Route: 048
     Dates: start: 20081204, end: 20081217

REACTIONS (2)
  - DYSPNOEA [None]
  - TOXIC SKIN ERUPTION [None]
